FAERS Safety Report 10975852 (Version 5)
Quarter: 2016Q4

REPORT INFORMATION
  Report Type: Spontaneous
  Country: US (occurrence: US)
  Receive Date: 20150401
  Receipt Date: 20161104
  Transmission Date: 20170206
  Serious: Yes (Hospitalization)
  Sender: FDA-Public Use
  Company Number: US-009507513-1503USA014886

PATIENT
  Sex: Male

DRUGS (1)
  1. PROPECIA [Suspect]
     Active Substance: FINASTERIDE
     Indication: ALOPECIA
     Dosage: 1 MG, UNKNOWN
     Route: 048
     Dates: start: 1996, end: 2006

REACTIONS (11)
  - Detoxification [Unknown]
  - Anxiety [Unknown]
  - Knee operation [Unknown]
  - Hyperlipidaemia [Unknown]
  - Sexual dysfunction [Not Recovered/Not Resolved]
  - Alcohol abuse [Unknown]
  - Detoxification [Unknown]
  - Hypothyroidism [Unknown]
  - Organic erectile dysfunction [Not Recovered/Not Resolved]
  - Blood testosterone decreased [Recovered/Resolved]
  - Fatigue [Unknown]

NARRATIVE: CASE EVENT DATE: 2000
